FAERS Safety Report 4358447-8 (Version None)
Quarter: 2004Q2

REPORT INFORMATION
  Report Type: 
  Country: None (occurrence: None)
  Receive Date: 20040511
  Receipt Date: 20040427
  Transmission Date: 20050107
  Serious: Yes (Life-Threatening, Hospitalization)
  Sender: FDA-Public Use
  Company Number: 2003-BP-00860BP

PATIENT
  Age: 3 Day
  Sex: Female

DRUGS (2)
  1. VIRAMUNE [Suspect]
     Indication: PROPHYLAXIS AGAINST HIV INFECTION
     Dosage: 0.6 ML (NR), PO
     Route: 048
     Dates: start: 20030112, end: 20030112
  2. VIRAMUNE [Suspect]
     Indication: VERTICAL INFECTION TRANSMISSION
     Dosage: 0.6 ML (NR), PO
     Route: 048
     Dates: start: 20030112, end: 20030112

REACTIONS (8)
  - CARDIAC FAILURE CONGESTIVE [None]
  - DRUG EXPOSURE DURING PREGNANCY [None]
  - FEEDING PROBLEM IN NEWBORN [None]
  - GRUNTING [None]
  - JAUNDICE NEONATAL [None]
  - NEONATAL DISORDER [None]
  - NEONATAL HEPATOMEGALY [None]
  - SEPSIS NEONATAL [None]
